FAERS Safety Report 9097637 (Version 1)
Quarter: 2013Q1

REPORT INFORMATION
  Report Type: Spontaneous
  Country: IR (occurrence: IR)
  Receive Date: 20130212
  Receipt Date: 20130212
  Transmission Date: 20140127
  Serious: Yes (Death, Other)
  Sender: FDA-Public Use
  Company Number: IR-JNJFOC-20130117209

PATIENT
  Age: 38 Year
  Sex: Female

DRUGS (3)
  1. RISPERIDONE [Suspect]
     Indication: BIPOLAR I DISORDER
     Route: 065
  2. BIPERIDEN [Suspect]
     Indication: BIPOLAR I DISORDER
     Route: 065
  3. HEPARIN [Suspect]
     Indication: DEEP VEIN THROMBOSIS
     Route: 065

REACTIONS (2)
  - Cardiac arrest [Fatal]
  - Deep vein thrombosis [Unknown]
